FAERS Safety Report 9247747 (Version 1)
Quarter: 2013Q2

REPORT INFORMATION
  Report Type: Report from Study
  Country: US (occurrence: US)
  Receive Date: 20130423
  Receipt Date: 20130423
  Transmission Date: 20140414
  Serious: Yes (Hospitalization)
  Sender: FDA-Public Use
  Company Number: US-SANOFI-AVENTIS-2013SA038681

PATIENT
  Age: 70 Year
  Sex: Female
  Weight: 83.91 kg

DRUGS (5)
  1. DOCETAXEL [Suspect]
     Indication: UTERINE LEIOMYOSARCOMA
     Dosage: OVER 60 MIN ON DAY 8
     Route: 042
     Dates: start: 20121205, end: 20130306
  2. BLINDED THERAPY [Suspect]
     Indication: UTERINE LEIOMYOSARCOMA
     Dosage: OVER 30-90 MIN ON DAY 1; FORM: INFUSION SOLUTION
     Route: 042
     Dates: start: 20121205, end: 20130306
  3. GEMCITABINE [Suspect]
     Indication: UTERINE LEIOMYOSARCOMA
     Dosage: OVER 90 MIN ON DAY 1 AND 8
     Route: 042
     Dates: start: 20121205, end: 20130306
  4. PEGFILGRASTIM [Suspect]
     Indication: UTERINE LEIOMYOSARCOMA
     Dosage: 6 MG ON DAY 9 OR 10
     Route: 058
     Dates: start: 20121205, end: 20130306
  5. ENOXAPARIN SODIUM [Suspect]
     Indication: PRODUCT USED FOR UNKNOWN INDICATION
     Route: 065

REACTIONS (3)
  - Platelet count decreased [Recovered/Resolved]
  - Haematoma [Recovered/Resolved]
  - Embolism [Not Recovered/Not Resolved]
